FAERS Safety Report 4885056-4 (Version None)
Quarter: 2006Q1

REPORT INFORMATION
  Report Type: 
  Country: None (occurrence: None)
  Receive Date: 20060119
  Receipt Date: 20051017
  Transmission Date: 20060701
  Serious: Yes (Hospitalization)
  Sender: FDA-Public Use
  Company Number: US-MERCK-0510USA07814

PATIENT
  Age: 69 Year
  Sex: Female
  Weight: 72 kg

DRUGS (14)
  1. VIOXX [Suspect]
     Indication: ARTHRITIS
     Route: 048
     Dates: start: 19991201
  2. VIOXX [Suspect]
     Route: 048
     Dates: start: 20040101, end: 20040930
  3. LISINOPRIL [Concomitant]
     Route: 065
  4. POTASSIUM (UNSPECIFIED) [Concomitant]
     Route: 065
  5. COLAZAL [Concomitant]
     Indication: COLITIS ULCERATIVE
     Route: 065
  6. PROPOXYPHENE HYDROCHLORIDE [Concomitant]
     Route: 065
  7. RANITIDINE [Concomitant]
     Route: 065
  8. ZOCOR [Concomitant]
     Indication: BLOOD CHOLESTEROL INCREASED
     Route: 048
     Dates: start: 19990901, end: 20040801
  9. ATENOLOL [Concomitant]
     Indication: HYPERTENSION
     Route: 065
     Dates: start: 19991009, end: 20001109
  10. COZAAR [Concomitant]
     Indication: HYPERTENSION
     Route: 048
     Dates: start: 20011108, end: 20030418
  11. PREDNISONE [Concomitant]
     Indication: PAIN
     Route: 065
     Dates: start: 20000101, end: 20001201
  12. PREMARIN [Concomitant]
     Route: 065
     Dates: start: 20000301, end: 20030101
  13. CLOZARIL [Concomitant]
     Route: 065
  14. HYZAAR [Concomitant]
     Route: 065

REACTIONS (45)
  - ADRENAL INSUFFICIENCY [None]
  - ANAEMIA [None]
  - ARRHYTHMIA [None]
  - ARTERIOSCLEROSIS [None]
  - ASTHENIA [None]
  - ATELECTASIS [None]
  - ATRIAL FIBRILLATION [None]
  - ATRIAL TACHYCARDIA [None]
  - BRAIN NATRIURETIC PEPTIDE INCREASED [None]
  - CARDIAC FAILURE CONGESTIVE [None]
  - CARDIOMEGALY [None]
  - CARDIOVASCULAR DISORDER [None]
  - CEREBRAL ATROPHY [None]
  - CHEST PAIN [None]
  - CHRONIC OBSTRUCTIVE PULMONARY DISEASE [None]
  - COLLAPSE OF LUNG [None]
  - COMPUTERISED TOMOGRAM ABNORMAL [None]
  - DEEP VEIN THROMBOSIS [None]
  - DILATATION ATRIAL [None]
  - DYSPNOEA [None]
  - FATIGUE [None]
  - FLATULENCE [None]
  - GASTROINTESTINAL HAEMORRHAGE [None]
  - HAEMORRHAGE INTRACRANIAL [None]
  - HYPERTENSIVE HEART DISEASE [None]
  - IRON DEFICIENCY ANAEMIA [None]
  - MALAISE [None]
  - MENTAL STATUS CHANGES [None]
  - MYOCARDIAL INFARCTION [None]
  - NAUSEA [None]
  - NODULE [None]
  - PAIN IN EXTREMITY [None]
  - PCO2 DECREASED [None]
  - PNEUMONIA [None]
  - PO2 DECREASED [None]
  - PULMONARY EMBOLISM [None]
  - PULMONARY FIBROSIS [None]
  - PYODERMA GANGRENOSUM [None]
  - RENAL FAILURE [None]
  - RENAL FAILURE CHRONIC [None]
  - RESPIRATORY DISTRESS [None]
  - STAPHYLOCOCCAL INFECTION [None]
  - VENOUS OCCLUSION [None]
  - VOMITING [None]
  - WHITE BLOOD CELL COUNT INCREASED [None]
